FAERS Safety Report 4684483-8 (Version None)
Quarter: 2005Q2

REPORT INFORMATION
  Report Type: 
  Country: None (occurrence: None)
  Receive Date: 20050606
  Receipt Date: 20050520
  Transmission Date: 20051028
  Serious: Yes (Other)
  Sender: FDA-Public Use
  Company Number: 2005078173

PATIENT
  Sex: Male

DRUGS (1)
  1. LISTERINE (MENTHOL, METHYL SALICYLATE, EUCALYPTOL, THYMOL) [Suspect]
     Indication: DENTAL DISORDER PROPHYLAXIS
     Dosage: 2 CAPFULS QD, ORAL TOPICAL
     Route: 048
     Dates: start: 20050502, end: 20050503

REACTIONS (3)
  - APNOEA [None]
  - HYPERSENSITIVITY [None]
  - THROAT TIGHTNESS [None]
